FAERS Safety Report 8265634-5 (Version None)
Quarter: 2012Q2

REPORT INFORMATION
  Report Type: 
  Country: None (occurrence: None)
  Receive Date: 20120406
  Receipt Date: 20120329
  Transmission Date: 20120825
  Serious: Yes (Other)
  Sender: FDA-Public Use
  Company Number: CHPA2012GB004882

PATIENT
  Sex: Female

DRUGS (4)
  1. SCOPOLAMINE [Suspect]
     Dosage: UNK, UNK
     Route: 062
     Dates: start: 20120106, end: 20120106
  2. SCOPOLAMINE [Suspect]
     Indication: MOTION SICKNESS
     Dosage: UNK, UNK
     Route: 062
     Dates: start: 20111101, end: 20111101
  3. ALENDRONIC ACID [Concomitant]
     Dosage: 1 DF, QW, FOR THE LAST 8 YEARS
  4. BENDROFLUMETHIAZIDE [Concomitant]
     Dosage: 1 DF, QD, FOR THE LAST 10 YEARS

REACTIONS (3)
  - APPLICATION SITE PAIN [None]
  - WOUND SECRETION [None]
  - THERMAL BURN [None]
